FAERS Safety Report 11202525 (Version 2)
Quarter: 2015Q3

REPORT INFORMATION
  Report Type: Spontaneous
  Country: US (occurrence: US)
  Receive Date: 20150619
  Receipt Date: 20150819
  Transmission Date: 20151125
  Serious: No
  Sender: FDA-Public Use
  Company Number: US-PFIZER INC-2015202364

PATIENT
  Age: 60 Year
  Sex: Female
  Weight: 72.56 kg

DRUGS (2)
  1. NEURONTIN [Suspect]
     Active Substance: GABAPENTIN
     Dosage: STRENGTH 800 MG
  2. NEURONTIN [Suspect]
     Active Substance: GABAPENTIN
     Indication: NEURALGIA
     Dosage: STRENGTH 600 MG

REACTIONS (6)
  - Drug tolerance [Unknown]
  - Abdominal pain upper [Unknown]
  - Product use issue [Unknown]
  - Hyperhidrosis [Unknown]
  - Palpitations [Unknown]
  - Paraesthesia [Unknown]
